FAERS Safety Report 7137709-5 (Version None)
Quarter: 2010Q4

REPORT INFORMATION
  Report Type: 
  Country: None (occurrence: None)
  Receive Date: 20101206
  Receipt Date: 20101129
  Transmission Date: 20110411
  Serious: No
  Sender: FDA-Public Use
  Company Number: US-JNJFOC-20101200676

PATIENT
  Sex: Female
  Weight: 70.31 kg

DRUGS (3)
  1. FENTANYL-100 [Suspect]
     Indication: BACK PAIN
     Route: 062
  2. SOMA [Concomitant]
     Indication: BACK PAIN
     Route: 048
  3. ADVIL [Concomitant]
     Indication: BACK PAIN
     Route: 048

REACTIONS (1)
  - DRUG ADMINISTERED AT INAPPROPRIATE SITE [None]
